FAERS Safety Report 7832478-5 (Version None)
Quarter: 2011Q4

REPORT INFORMATION
  Report Type: 
  Country: None (occurrence: None)
  Receive Date: 20111023
  Receipt Date: 20111011
  Transmission Date: 20120403
  Serious: Yes (Hospitalization, Other)
  Sender: FDA-Public Use
  Company Number: US-ELI_LILLY_AND_COMPANY-US201108003251

PATIENT
  Sex: Female
  Weight: 79.1 kg

DRUGS (22)
  1. HUMULIN N [Suspect]
     Indication: DIABETES MELLITUS
     Dosage: 28 U, EACH MORNING
  2. HUMULIN N [Suspect]
     Dosage: 37 U, EACH EVENING
     Dates: start: 19640101
  3. VITAMIN D [Concomitant]
     Dosage: 50000 U, OTHER
     Route: 048
  4. EVENING PRIMROSE OIL [Concomitant]
     Dosage: 2000 MG, BID
     Route: 048
  5. HUMALOG [Suspect]
     Indication: DIABETES MELLITUS
     Dosage: UNK UNK, OTHER
     Dates: end: 20110701
  6. HUMULIN N [Suspect]
     Dosage: 15 U, BID
     Dates: start: 20110807
  7. AMLODIPINE BESYLATE [Concomitant]
     Dosage: 5 MG, QD
     Route: 048
  8. SALSALATE [Concomitant]
     Dosage: 1500 MG, BID
     Route: 048
  9. ATENOLOL [Concomitant]
     Dosage: 50 MG, QD
     Route: 048
  10. RAMIPRIL [Concomitant]
     Dosage: 5 MG, QD
     Route: 048
  11. NASONEX [Concomitant]
     Dosage: UNK, BID
  12. DIGOXIN [Concomitant]
     Dosage: 0.125 MG, QD
     Route: 048
  13. HUMULIN N [Suspect]
     Dosage: 28 U, EACH MORNING
     Dates: start: 19640101
  14. HUMALOG [Suspect]
     Dosage: UNK, OTHER
     Dates: start: 19640101, end: 20110701
  15. GABAPENTIN [Concomitant]
     Dosage: 100 MG, QD
     Route: 048
  16. LIPITOR [Concomitant]
     Dosage: 10 MG, QD
     Route: 048
  17. NITROGLYCERIN [Concomitant]
     Indication: CHEST PAIN
     Dosage: 0.4 MG, PRN
     Route: 060
  18. SERTRALINE HYDROCHLORIDE [Concomitant]
     Dosage: 100 MG, UNK
     Route: 048
  19. HUMULIN N [Suspect]
     Dosage: 37 U, EACH EVENING
     Dates: start: 19640101
  20. FUROSEMIDE [Concomitant]
     Dosage: 20 MG, BID
  21. PLAVIX [Concomitant]
     Dosage: 75 MG, QD
     Route: 048
  22. WARFARIN SODIUM [Concomitant]
     Dosage: 2.5 MG, UNK

REACTIONS (15)
  - BACK DISORDER [None]
  - THERAPEUTIC RESPONSE INCREASED [None]
  - DIABETIC RETINOPATHY [None]
  - ARTHRALGIA [None]
  - GAIT DISTURBANCE [None]
  - THINKING ABNORMAL [None]
  - BLOOD GLUCOSE DECREASED [None]
  - SPINAL COLUMN STENOSIS [None]
  - INCORRECT DOSE ADMINISTERED [None]
  - MALAISE [None]
  - FALL [None]
  - SCIATICA [None]
  - CHEST PAIN [None]
  - MYOCARDIAL INFARCTION [None]
  - BLOOD GLUCOSE INCREASED [None]
